FAERS Safety Report 5804332-1 (Version None)
Quarter: 2008Q3

REPORT INFORMATION
  Report Type: 
  Country: None (occurrence: None)
  Receive Date: 20080709
  Receipt Date: 20080627
  Transmission Date: 20090109
  Serious: Yes (Hospitalization)
  Sender: FDA-Public Use
  Company Number: US-JNJFOC-20080606828

PATIENT
  Sex: Female
  Weight: 63.5 kg

DRUGS (9)
  1. FENTANYL TRANSDERMAL SYSTEM [Suspect]
     Indication: SYSTEMIC LUPUS ERYTHEMATOSUS
     Route: 062
  2. FENTANYL TRANSDERMAL SYSTEM [Suspect]
     Indication: BACK PAIN
     Route: 062
  3. CLONIDINE [Suspect]
     Indication: WITHDRAWAL SYNDROME
     Route: 062
  4. MORPHINE [Suspect]
     Indication: DETOXIFICATION
     Route: 048
  5. ABILIFY [Suspect]
     Indication: DEPRESSION
     Route: 048
  6. PLAQUENIL [Concomitant]
     Indication: SYSTEMIC LUPUS ERYTHEMATOSUS
     Route: 048
  7. ESTRATEST [Concomitant]
     Route: 048
  8. EFFEXOR [Concomitant]
     Indication: DEPRESSION
     Route: 048
  9. HYDROCODONE [Concomitant]
     Indication: BREAKTHROUGH PAIN
     Route: 048

REACTIONS (9)
  - BACK PAIN [None]
  - BEDRIDDEN [None]
  - DETOXIFICATION [None]
  - DRUG EFFECT DECREASED [None]
  - EPILEPSY [None]
  - PHARMACEUTICAL PRODUCT COMPLAINT [None]
  - VOMITING [None]
  - WITHDRAWAL SYNDROME [None]
  - WRONG TECHNIQUE IN DRUG USAGE PROCESS [None]
